FAERS Safety Report 19036720 (Version 1)
Quarter: 2021Q1

REPORT INFORMATION
  Report Type: Spontaneous
  Country: US (occurrence: US)
  Receive Date: 20210322
  Receipt Date: 20210322
  Transmission Date: 20210420
  Serious: No
  Sender: FDA-Public Use
  Company Number: None

PATIENT
  Age: 79 Year
  Sex: Male

DRUGS (7)
  1. DEXAMETHASONE. [Concomitant]
     Active Substance: DEXAMETHASONE
  2. TAMSULOSIN [Concomitant]
     Active Substance: TAMSULOSIN
  3. LISINOPRIL. [Concomitant]
     Active Substance: LISINOPRIL
  4. INSULIN GLARGINE [Concomitant]
     Active Substance: INSULIN GLARGINE
  5. INSULIN ASPART [Concomitant]
     Active Substance: INSULIN ASPART
  6. ALLOPURINOL. [Concomitant]
     Active Substance: ALLOPURINOL
  7. REMDESIVIR. [Suspect]
     Active Substance: REMDESIVIR
     Dates: start: 20201223, end: 20201224

REACTIONS (1)
  - Bradycardia [None]
